FAERS Safety Report 9993781 (Version 2)
Quarter: 2014Q1

REPORT INFORMATION
  Report Type: Spontaneous
  Country: US (occurrence: US)
  Receive Date: 20140310
  Receipt Date: 20140310
  Transmission Date: 20141002
  Serious: No
  Sender: FDA-Public Use
  Company Number: US-AMGEN-USASP2013037234

PATIENT
  Age: 60 Year
  Sex: Female
  Weight: 80.27 kg

DRUGS (3)
  1. SENSIPAR [Suspect]
     Indication: HYPERPARATHYROIDISM SECONDARY
     Dosage: 30 MG, QD
     Route: 048
     Dates: start: 20121019, end: 20121104
  2. RENVELA [Concomitant]
     Indication: HYPERPHOSPHATAEMIA
     Dosage: 800 MG, TID
     Dates: start: 20120517
  3. TUMS                               /00193601/ [Concomitant]
     Indication: HYPERPHOSPHATAEMIA
     Dosage: 500 MG, TID
     Dates: start: 20120517

REACTIONS (3)
  - Abdominal pain upper [Recovered/Resolved]
  - Throat tightness [Recovered/Resolved]
  - Nausea [Unknown]
